FAERS Safety Report 17849619 (Version 1)
Quarter: 2020Q2

REPORT INFORMATION
  Report Type: Spontaneous
  Country: US (occurrence: US)
  Receive Date: 20200601
  Receipt Date: 20200601
  Transmission Date: 20200714
  Serious: Yes (Other)
  Sender: FDA-Public Use
  Company Number: None

PATIENT

DRUGS (2)
  1. ACD-A [Suspect]
     Active Substance: ANHYDROUS CITRIC ACID\DEXTROSE MONOHYDRATE\SODIUM CITRATE
  2. CITRATE ANTICOAGULANT 1000 ML BAG [Concomitant]

REACTIONS (2)
  - Product label issue [None]
  - Product administration interrupted [None]

NARRATIVE: CASE EVENT DATE: 20200527
